FAERS Safety Report 8081181-8 (Version None)
Quarter: 2012Q1

REPORT INFORMATION
  Report Type: 
  Country: None (occurrence: None)
  Receive Date: 20120130
  Receipt Date: 20120120
  Transmission Date: 20120608
  Serious: Yes (Disabling)
  Sender: FDA-Public Use
  Company Number: GB-GLAXOSMITHKLINE-B0776455A

PATIENT
  Age: 78 Year
  Sex: Female
  Weight: 58 kg

DRUGS (15)
  1. AMITRIPTYLINE HCL [Concomitant]
     Dates: start: 20111010
  2. IBUPROFEN [Concomitant]
     Dates: start: 20111010
  3. HYOSCINE BUTYLBROMIDE [Concomitant]
     Dates: start: 20120111
  4. ASPIRIN [Concomitant]
     Dates: start: 20111010
  5. LIDOCAINE [Concomitant]
     Dates: start: 20111010
  6. NORMACOL [Concomitant]
     Dates: start: 20111010, end: 20111109
  7. SODIUM ALGINATE [Concomitant]
     Dates: start: 20111010
  8. BENDROFLUMETHIAZIDE [Concomitant]
     Dates: start: 20111010
  9. TOLTERODINE TARTRATE [Concomitant]
     Dates: start: 20111010
  10. SIMVADOR [Concomitant]
     Dates: start: 20111010, end: 20111227
  11. ALGESAL [Concomitant]
     Dates: start: 20111202, end: 20111209
  12. ROPINIROLE [Suspect]
     Indication: RESTLESS LEGS SYNDROME
     Dates: start: 20120111
  13. LANSOPRAZOLE [Concomitant]
     Dates: start: 20111010, end: 20111109
  14. ZOPICLONE [Concomitant]
     Dates: start: 20111010
  15. QUININE SULFATE [Concomitant]
     Dates: start: 20111010

REACTIONS (7)
  - LIP SWELLING [None]
  - VOMITING [None]
  - NAUSEA [None]
  - FATIGUE [None]
  - HYPERSENSITIVITY [None]
  - PETECHIAE [None]
  - PHARYNGEAL OEDEMA [None]
